FAERS Safety Report 14933507 (Version 1)
Quarter: 2018Q2

REPORT INFORMATION
  Report Type: Spontaneous
  Country: US (occurrence: US)
  Receive Date: 20180524
  Receipt Date: 20180524
  Transmission Date: 20180711
  Serious: No
  Sender: FDA-Public Use
  Company Number: US-ASTRAZENECA-2018SE56199

PATIENT

DRUGS (2)
  1. NEXIUM [Suspect]
     Active Substance: ESOMEPRAZOLE MAGNESIUM
     Route: 048
  2. BETAPYN [Concomitant]

REACTIONS (5)
  - Vomiting [Unknown]
  - Fatigue [Unknown]
  - Ulcer [Unknown]
  - Dysphagia [Unknown]
  - Headache [Unknown]
